FAERS Safety Report 22609119 (Version 2)
Quarter: 2023Q2

REPORT INFORMATION
  Report Type: Spontaneous
  Country: IR (occurrence: IR)
  Receive Date: 20230616
  Receipt Date: 20230628
  Transmission Date: 20230721
  Serious: Yes (Death, Life-Threatening, Hospitalization, Other)
  Sender: FDA-Public Use
  Company Number: IR-Accord-359939

PATIENT
  Age: 64 Year
  Sex: Female

DRUGS (7)
  1. METHOTREXATE [Suspect]
     Active Substance: METHOTREXATE
     Indication: Rheumatoid arthritis
     Dosage: 15 MG PER WEEK (7.5 MG ON THURSDAYS AND FRIDAYS)
  2. LEFLUNOMIDE [Concomitant]
     Active Substance: LEFLUNOMIDE
     Indication: Rheumatoid arthritis
  3. ATORVASTATIN [Concomitant]
     Active Substance: ATORVASTATIN
     Indication: Dyslipidaemia
  4. FOLIC ACID [Concomitant]
     Active Substance: FOLIC ACID
     Dosage: 1 MG DAILY EXCEPT ON THURSDAYS AND FRIDAYS
  5. PREDNISOLONE [Concomitant]
     Active Substance: PREDNISOLONE
     Indication: Rheumatoid arthritis
  6. LOSARTAN [Concomitant]
     Active Substance: LOSARTAN
     Indication: Hypertension
  7. METHOTREXATE [Suspect]
     Active Substance: METHOTREXATE
     Indication: Rheumatoid arthritis

REACTIONS (10)
  - Pancytopenia [Fatal]
  - Diarrhoea [Unknown]
  - Mucosal inflammation [Recovering/Resolving]
  - Pneumonia [Fatal]
  - Abdominal pain [Unknown]
  - Septic shock [Fatal]
  - Vomiting [Unknown]
  - Odynophagia [Recovering/Resolving]
  - Nausea [Unknown]
  - Inappropriate schedule of product administration [Fatal]
